FAERS Safety Report 5822941-0 (Version None)
Quarter: 2008Q3

REPORT INFORMATION
  Report Type: 
  Country: None (occurrence: None)
  Receive Date: 20080724
  Receipt Date: 20080724
  Transmission Date: 20090109
  Serious: Yes (Disabling)
  Sender: FDA-Public Use
  Company Number: None

PATIENT
  Sex: Male
  Weight: 81.6475 kg

DRUGS (2)
  1. ROSUVASTATIN CALCIUM [Suspect]
     Indication: BLOOD CHOLESTEROL INCREASED
     Dosage: 1/2 TAB DAILY AT BEDTIME
     Dates: start: 20080101, end: 20080601
  2. ROSUVASTATIN CALCIUM [Suspect]
     Dosage: 1/2 TAB DAILY AT BEDTIME

REACTIONS (3)
  - FATIGUE [None]
  - GAIT DISTURBANCE [None]
  - MYALGIA [None]
